FAERS Safety Report 5153854-8 (Version None)
Quarter: 2006Q4

REPORT INFORMATION
  Report Type: 
  Country: None (occurrence: None)
  Receive Date: 20061120
  Receipt Date: 20061109
  Transmission Date: 20070319
  Serious: Yes (Other)
  Sender: FDA-Public Use
  Company Number: PHBS2006CH17304

PATIENT
  Age: 59 Year
  Sex: Female

DRUGS (2)
  1. LEPONEX [Suspect]
     Dates: start: 20050701, end: 20051201
  2. ANTIDEPRESSANTS [Concomitant]
     Dates: end: 20051201

REACTIONS (4)
  - BLOOD ALKALINE PHOSPHATASE INCREASED [None]
  - GAMMA-GLUTAMYLTRANSFERASE INCREASED [None]
  - GRANULOMATOUS LIVER DISEASE [None]
  - TRANSAMINASES INCREASED [None]
